FAERS Safety Report 18048093 (Version 1)
Quarter: 2020Q3

REPORT INFORMATION
  Report Type: Spontaneous
  Country: US (occurrence: US)
  Receive Date: 20200720
  Receipt Date: 20200720
  Transmission Date: 20201103
  Serious: Yes (Other)
  Sender: FDA-Public Use
  Company Number: None

PATIENT
  Age: 59 Year
  Sex: Female

DRUGS (1)
  1. EUROPEAN TANNING SUNSCREEN (COCOA BUTTER\ZINC OXIDE) [Suspect]
     Active Substance: COCOA BUTTER\ZINC OXIDE
     Indication: PROPHYLAXIS AGAINST SOLAR RADIATION
     Dosage: ?          OTHER STRENGTH:NO STANDARD;QUANTITY:1 APPLY TO SKIN;?
     Route: 061
     Dates: start: 20100401, end: 20180927

REACTIONS (7)
  - Malignant neoplasm progression [None]
  - Adulterated product [None]
  - Basal cell carcinoma [None]
  - Manufacturing production issue [None]
  - Actinic keratosis [None]
  - Drug ineffective [None]
  - Product label confusion [None]

NARRATIVE: CASE EVENT DATE: 20191022
